FAERS Safety Report 9707724 (Version 1)
Quarter: 2013Q2

REPORT INFORMATION
  Report Type: Spontaneous
  Country: US (occurrence: None)
  Receive Date: 20130603
  Receipt Date: 20130603
  Transmission Date: 20140414
  Serious: Yes (Hospitalization)
  Sender: FDA-Public Use
  Company Number: KAMADA LTD MFR #38164

PATIENT
  Sex: Male

DRUGS (1)
  1. GLASSIA [Suspect]
     Indication: ALPHA-1 ANTI-TRYPSIN DEFICIENCY
     Route: 042

REACTIONS (6)
  - Pneumonia [None]
  - Blood potassium abnormal [None]
  - Foot fracture [None]
  - Speech disorder [None]
  - Thrombosis [None]
  - Malaise [None]
